FAERS Safety Report 26164922 (Version 1)
Quarter: 2025Q4

REPORT INFORMATION
  Report Type: Spontaneous
  Country: CN (occurrence: CN)
  Receive Date: 20251216
  Receipt Date: 20251216
  Transmission Date: 20260118
  Serious: Yes (Other)
  Sender: ROCHE
  Company Number: CN-ROCHE-10000461087

PATIENT
  Age: 6 Year

DRUGS (1)
  1. XOFLUZA [Suspect]
     Active Substance: BALOXAVIR MARBOXIL
     Indication: Product used for unknown indication
     Dosage: TOOK MORE THAN HALF A TABLET.

REACTIONS (2)
  - Hyperpyrexia [Not Recovered/Not Resolved]
  - Product administration error [Unknown]
